FAERS Safety Report 24046912 (Version 3)
Quarter: 2025Q1

REPORT INFORMATION
  Report Type: Spontaneous
  Country: PL (occurrence: PL)
  Receive Date: 20240703
  Receipt Date: 20250116
  Transmission Date: 20250408
  Serious: Yes (Hospitalization, Other)
  Sender: PFIZER
  Company Number: PL-ROCHE-10000002186

PATIENT
  Age: 72 Year
  Sex: Male

DRUGS (2)
  1. BEVACIZUMAB [Suspect]
     Active Substance: BEVACIZUMAB
     Indication: Hepatocellular carcinoma
     Route: 065
     Dates: start: 20230424, end: 20240306
  2. ATEZOLIZUMAB [Suspect]
     Active Substance: ATEZOLIZUMAB
     Indication: Hepatocellular carcinoma
     Route: 065
     Dates: start: 20230424, end: 20240306

REACTIONS (14)
  - Hypoxia [Unknown]
  - Influenza A virus test positive [Unknown]
  - Pneumonia [Unknown]
  - Upper respiratory tract infection [Unknown]
  - Hypotonia [Unknown]
  - Chronic obstructive pulmonary disease [Unknown]
  - Lower respiratory tract infection [Unknown]
  - General physical health deterioration [Unknown]
  - Hypercapnia [Unknown]
  - Leukocytosis [Unknown]
  - C-reactive protein increased [Unknown]
  - Neutrophilia [Unknown]
  - Lung infiltration [Unknown]
  - Off label use [Unknown]

NARRATIVE: CASE EVENT DATE: 20230424
